FAERS Safety Report 6485208-6 (Version None)
Quarter: 2009Q4

REPORT INFORMATION
  Report Type: 
  Country: None (occurrence: None)
  Receive Date: 20091209
  Receipt Date: 20090702
  Transmission Date: 20100525
  Serious: No
  Sender: FDA-Public Use
  Company Number: US-AMGEN-KDL351887

PATIENT
  Sex: Female

DRUGS (1)
  1. ENBREL [Suspect]
     Indication: RHEUMATOID ARTHRITIS
     Route: 058
     Dates: start: 20030826

REACTIONS (6)
  - ACNE [None]
  - APHTHOUS STOMATITIS [None]
  - DRY MOUTH [None]
  - LIP DRY [None]
  - THIRST [None]
  - TONGUE ERUPTION [None]
